FAERS Safety Report 16657078 (Version 4)
Quarter: 2020Q1

REPORT INFORMATION
  Report Type: Spontaneous
  Country: FR (occurrence: FR)
  Receive Date: 20190801
  Receipt Date: 20200121
  Transmission Date: 20200409
  Serious: Yes (Life-Threatening, Hospitalization, Disabling, Other)
  Sender: FDA-Public Use
  Company Number: FR-PFIZER INC-2019325616

PATIENT
  Age: 43 Year
  Sex: Male

DRUGS (12)
  1. DOLIPRANE [Concomitant]
     Active Substance: ACETAMINOPHEN
     Dosage: UNK
  2. LEXOMIL [Concomitant]
     Active Substance: BROMAZEPAM
     Dosage: 3 DF, 1X/DAY
     Route: 065
  3. IBUPROFEN. [Suspect]
     Active Substance: IBUPROFEN
     Indication: RHINITIS
     Dosage: UNK
  4. LAMOTRIGINE BIOGARAN [Suspect]
     Active Substance: LAMOTRIGINE
     Dosage: 2 DF, WEEKLY
     Dates: start: 201706
  5. INSULIN PORCINE [Concomitant]
     Active Substance: INSULIN PORK\INSULIN PURIFIED PORK
     Indication: TYPE 1 DIABETES MELLITUS
     Dosage: UNK
  6. PIVALONE [TIXOCORTOL PIVALATE] [Concomitant]
     Active Substance: TIXOCORTOL PIVALATE
     Indication: RHINITIS
     Dosage: 1 TO 2 SPRAYS FOUR TIMES DAILY
     Dates: start: 201706
  7. LAMOTRIGINE BIOGARAN [Suspect]
     Active Substance: LAMOTRIGINE
     Dosage: 3 DF, 1X/DAY, (3 DF IN THE MORNING)
     Route: 048
     Dates: start: 201706
  8. LAMOTRIGINE BIOGARAN [Suspect]
     Active Substance: LAMOTRIGINE
     Indication: BIPOLAR DISORDER
     Dosage: 1 DF, 1X/DAY (EVERY DAY)
     Dates: start: 201705
  9. RIVOTRIL [Concomitant]
     Active Substance: CLONAZEPAM
     Dosage: 10 (DRP), 1X/DAY, (10 GTT, ONCE A DAY)
     Route: 065
  10. AUGMENTIN [Suspect]
     Active Substance: AMOXICILLIN\CLAVULANATE POTASSIUM
     Dosage: 2 DF, 3X/DAY
     Dates: start: 20170607
  11. AUGMENTIN [Suspect]
     Active Substance: AMOXICILLIN\CLAVULANATE POTASSIUM
     Indication: RHINITIS
     Dosage: 2 DF, 2X/DAY
     Dates: start: 201706
  12. TIAPRIDAL [Concomitant]
     Active Substance: TIAPRIDE HYDROCHLORIDE
     Dosage: 1.5 DF, (0.5 DF THREE TIMES DAILY AS NEEDED)
     Route: 065

REACTIONS (3)
  - Toxic epidermal necrolysis [Recovered/Resolved with Sequelae]
  - Off label use [Unknown]
  - Quadriplegia [Not Recovered/Not Resolved]

NARRATIVE: CASE EVENT DATE: 201705
